FAERS Safety Report 4543579-1 (Version None)
Quarter: 2005Q1

REPORT INFORMATION
  Report Type: 
  Country: None (occurrence: None)
  Receive Date: 20050103
  Receipt Date: 20040810
  Transmission Date: 20050727
  Serious: Yes (Life-Threatening)
  Sender: FDA-Public Use
  Company Number: 2004JP001485

PATIENT
  Age: 83 Year
  Sex: Male
  Weight: 53.6 kg

DRUGS (1)
  1. CEFAMEZIN [Suspect]
     Route: 042
     Dates: start: 20040804, end: 20040804

REACTIONS (4)
  - BLOOD PRESSURE DECREASED [None]
  - BRADYCARDIA [None]
  - LOSS OF CONSCIOUSNESS [None]
  - SHOCK [None]
